FAERS Safety Report 18124792 (Version 1)
Quarter: 2020Q3

REPORT INFORMATION
  Report Type: Spontaneous
  Country: AR (occurrence: AR)
  Receive Date: 20200807
  Receipt Date: 20200807
  Transmission Date: 20201103
  Serious: Yes (Other)
  Sender: FDA-Public Use
  Company Number: AR-PFIZER INC-2020300508

PATIENT
  Age: 76 Year
  Sex: Female

DRUGS (1)
  1. XELJANZ [Suspect]
     Active Substance: TOFACITINIB CITRATE
     Indication: RHEUMATOID ARTHRITIS
     Dosage: 5 MG, TWICE A DAY
     Dates: start: 20140304

REACTIONS (1)
  - Lower limb fracture [Unknown]

NARRATIVE: CASE EVENT DATE: 201912
